FAERS Safety Report 6411232-5 (Version None)
Quarter: 2009Q4

REPORT INFORMATION
  Report Type: 
  Country: None (occurrence: None)
  Receive Date: 20091020
  Receipt Date: 20091015
  Transmission Date: 20100525
  Serious: Yes (Other)
  Sender: FDA-Public Use
  Company Number: LTI2009A00298

PATIENT
  Age: 73 Year
  Sex: Male

DRUGS (1)
  1. ACTOS [Suspect]
     Indication: TYPE 2 DIABETES MELLITUS
     Dosage: 15 MG (15 MG,1 IN 1 D) ORAL
     Route: 048
     Dates: start: 20090101, end: 20090101

REACTIONS (1)
  - DEEP VEIN THROMBOSIS [None]
